FAERS Safety Report 23506030 (Version 1)
Quarter: 2024Q1

REPORT INFORMATION
  Report Type: Spontaneous
  Country: NL (occurrence: NL)
  Receive Date: 20240209
  Receipt Date: 20240209
  Transmission Date: 20240410
  Serious: Yes (Other)
  Sender: FDA-Public Use
  Company Number: None

PATIENT

DRUGS (3)
  1. BUPROPION [Suspect]
     Active Substance: BUPROPION
     Indication: Attention deficit hyperactivity disorder
     Dosage: 300 MG, QD (1 PER DAY)
     Route: 065
     Dates: start: 20231010
  2. BUPROPION [Suspect]
     Active Substance: BUPROPION
     Indication: Depression
  3. DESOGESTREL [Suspect]
     Active Substance: DESOGESTREL
     Indication: Premenstrual syndrome
     Dosage: 75 ?G, QD
     Route: 065
     Dates: start: 20200201

REACTIONS (3)
  - Abdominal discomfort [Recovered/Resolved]
  - Suicidal ideation [Recovered/Resolved]
  - Depressive symptom [Recovered/Resolved]
